FAERS Safety Report 7423549-6 (Version None)
Quarter: 2011Q2

REPORT INFORMATION
  Report Type: 
  Country: None (occurrence: None)
  Receive Date: 20110419
  Receipt Date: 20110224
  Transmission Date: 20111010
  Serious: Yes (Hospitalization, Other)
  Sender: FDA-Public Use
  Company Number: US-BAYER-US-2005-014552

PATIENT
  Age: 46 Year
  Sex: Female
  Weight: 61.224 kg

DRUGS (11)
  1. DOXYCYCLINE [Concomitant]
     Dosage: UNK
     Dates: start: 20060111
  2. METRONIDAZOLE [Concomitant]
     Dosage: UNK
     Dates: start: 20060223
  3. FLEXERIL [Concomitant]
     Dosage: UNK
     Dates: start: 20050909
  4. ZITHROMAX [Concomitant]
     Dosage: UNK
     Dates: start: 20051105
  5. YASMIN [Suspect]
     Indication: POLYCYSTIC OVARIES
     Dosage: 1 TAB(S), 1X/DAY [DAILY DOSE: 1 TAB(S)]
     Route: 048
     Dates: start: 20030101, end: 20090101
  6. AMOX-TR-K-CLV [Concomitant]
     Dosage: UNK
     Dates: start: 20061103
  7. OMNICEF [Concomitant]
     Dosage: UNK
     Dates: start: 20061103
  8. YASMIN [Suspect]
     Dosage: UNK
     Dates: start: 20040101, end: 20090101
  9. AUGMENTIN XR [Concomitant]
     Dosage: UNK
     Dates: start: 20051229
  10. AMOXICILINA CLAV [Concomitant]
     Dosage: UNK
     Dates: start: 20050314
  11. METOCLOPRAMIDE [Concomitant]
     Dosage: UNK
     Dates: start: 20060223

REACTIONS (3)
  - GALLBLADDER DISORDER [None]
  - CHOLECYSTITIS CHRONIC [None]
  - ABDOMINAL PAIN UPPER [None]
